FAERS Safety Report 10058164 (Version 1)
Quarter: 2014Q2

REPORT INFORMATION
  Report Type: Spontaneous
  Country: US (occurrence: None)
  Receive Date: 20140403
  Receipt Date: 20140403
  Transmission Date: 20141212
  Serious: Yes (Life-Threatening, Disabling)
  Sender: FDA-Public Use
  Company Number: None

PATIENT
  Age: 50 Year
  Sex: Male
  Weight: 99.79 kg

DRUGS (12)
  1. SEROQUEL [Suspect]
     Indication: BIPOLAR DISORDER
  2. CITALOPRAM [Concomitant]
  3. ZOLPIDEM [Concomitant]
  4. HYDROCHLOROTHIAZIDE 25MG (1 X DAY) [Concomitant]
  5. METFORMIN [Concomitant]
  6. GEMFIBROZIL [Concomitant]
  7. VITAMIN B 12 [Concomitant]
  8. ONE A DAY MULTIVITAMINS [Concomitant]
  9. BENAZEPRIL HCL [Concomitant]
  10. RESPERIDAL [Concomitant]
  11. VITAMIN B COMPLEX [Concomitant]
  12. VITAMIN C [Concomitant]

REACTIONS (3)
  - Cerebrovascular accident [None]
  - Pain [None]
  - Unevaluable event [None]
